FAERS Safety Report 10286301 (Version 1)
Quarter: 2014Q3

REPORT INFORMATION
  Report Type: Spontaneous
  Country: CA (occurrence: CA)
  Receive Date: 20140709
  Receipt Date: 20140709
  Transmission Date: 20150326
  Serious: Yes (Disabling)
  Sender: FDA-Public Use
  Company Number: CA-AMGEN-CANSP2014050163

PATIENT
  Sex: Male
  Weight: 63 kg

DRUGS (1)
  1. PROLIA [Suspect]
     Active Substance: DENOSUMAB
     Indication: PRODUCT USED FOR UNKNOWN INDICATION
     Dosage: 60 MG, Q6MO
     Route: 058

REACTIONS (14)
  - Pruritus [Unknown]
  - Dry skin [Unknown]
  - Pain in extremity [Unknown]
  - Hypoaesthesia oral [Unknown]
  - Arthralgia [Unknown]
  - Dizziness [Unknown]
  - Groin pain [Unknown]
  - Pain in jaw [Unknown]
  - Stress fracture [Unknown]
  - Local swelling [Unknown]
  - Muscle spasms [Unknown]
  - Hypotension [Unknown]
  - Paraesthesia oral [Unknown]
  - Blood calcium decreased [Unknown]
